FAERS Safety Report 13608178 (Version 4)
Quarter: 2017Q4

REPORT INFORMATION
  Report Type: Spontaneous
  Country: US (occurrence: US)
  Receive Date: 20170602
  Receipt Date: 20171004
  Transmission Date: 20180320
  Serious: Yes (Hospitalization, Other)
  Sender: FDA-Public Use
  Company Number: US-AMGEN-USASP2017083189

PATIENT
  Age: 74 Year
  Sex: Female

DRUGS (1)
  1. PROLIA [Suspect]
     Active Substance: DENOSUMAB
     Indication: OSTEOPOROSIS POSTMENOPAUSAL
     Dosage: 60 MG, Q6MO
     Route: 065
     Dates: start: 2015

REACTIONS (14)
  - Device failure [Not Recovered/Not Resolved]
  - Bone loss [Unknown]
  - Chronic obstructive pulmonary disease [Not Recovered/Not Resolved]
  - Gait inability [Not Recovered/Not Resolved]
  - Back pain [Unknown]
  - Facial paralysis [Recovered/Resolved]
  - Neuralgia [Not Recovered/Not Resolved]
  - Bone pain [Unknown]
  - Weight increased [Unknown]
  - Pain in jaw [Unknown]
  - Anxiety [Unknown]
  - Parathyroidectomy [Unknown]
  - Spinal disorder [Not Recovered/Not Resolved]
  - Tooth disorder [Unknown]

NARRATIVE: CASE EVENT DATE: 2016
